FAERS Safety Report 18763163 (Version 1)
Quarter: 2021Q1

REPORT INFORMATION
  Report Type: Spontaneous
  Country: US (occurrence: US)
  Receive Date: 20210120
  Receipt Date: 20210120
  Transmission Date: 20210419
  Serious: No
  Sender: FDA-Public Use
  Company Number: US-PFIZER INC-2021036560

PATIENT
  Sex: Female

DRUGS (2)
  1. CEFEPIME HCL [Suspect]
     Active Substance: CEFEPIME HYDROCHLORIDE
     Dosage: 2 G, DAILY ( 2 GRAMS A DAY)
  2. CEFEPIME HCL [Suspect]
     Active Substance: CEFEPIME HYDROCHLORIDE
     Indication: OSTEOMYELITIS
     Dosage: 2 G, 2X/DAY (2 GRAMS EVERY 12 HOURS)

REACTIONS (4)
  - Dyskinesia [Unknown]
  - Metabolic disorder [Unknown]
  - Off label use [Unknown]
  - Myoclonus [Unknown]
